FAERS Safety Report 6490825-3 (Version None)
Quarter: 2009Q4

REPORT INFORMATION
  Report Type: 
  Country: None (occurrence: None)
  Receive Date: 20091204
  Receipt Date: 20091124
  Transmission Date: 20100525
  Serious: Yes (Death)
  Sender: FDA-Public Use
  Company Number: 2009028133

PATIENT
  Sex: Male

DRUGS (3)
  1. NUVIGIL [Suspect]
     Dosage: ORAL
     Route: 048
  2. CYMBALTA [Concomitant]
  3. AMBIEN [Concomitant]

REACTIONS (1)
  - COMPLETED SUICIDE [None]
